FAERS Safety Report 21690797 (Version 1)
Quarter: 2022Q4

REPORT INFORMATION
  Report Type: Other
  Country: CA (occurrence: CA)
  Receive Date: 20221207
  Receipt Date: 20221207
  Transmission Date: 20230113
  Serious: Yes (Hospitalization)
  Sender: FDA-Public Use
  Company Number: CA-HLS-202108567

PATIENT
  Age: 30 Year
  Sex: Male
  Weight: 160 kg

DRUGS (1)
  1. CLOZAPINE [Suspect]
     Active Substance: CLOZAPINE
     Indication: Product used for unknown indication
     Dosage: TWICE DAILY , ON 12TH DAY CLOZAPINE 75MG TWICE DAILY.
     Route: 048

REACTIONS (5)
  - Pulmonary embolism [Recovered/Resolved]
  - Fall [Recovered/Resolved]
  - Vomiting [Recovered/Resolved]
  - Respiratory rate increased [Recovered/Resolved]
  - Condition aggravated [Recovered/Resolved]
